FAERS Safety Report 7059650-9 (Version None)
Quarter: 2010Q4

REPORT INFORMATION
  Report Type: 
  Country: None (occurrence: None)
  Receive Date: 20101025
  Receipt Date: 20101022
  Transmission Date: 20110411
  Serious: Yes (Other)
  Sender: FDA-Public Use
  Company Number: GB-ROXANE LABORATORIES, INC.-2010-DE-05752GD

PATIENT
  Sex: Male

DRUGS (8)
  1. MORPHINE SULFATE [Suspect]
     Indication: BACK PAIN
     Dosage: TITRATING UP TO 120 MG
  2. CODEINE [Suspect]
     Indication: BACK PAIN
  3. TRAMADOL [Suspect]
     Indication: BACK PAIN
  4. OMEPRAZOLE [Concomitant]
  5. ASPIRIN [Concomitant]
  6. PROPRANOLOL [Concomitant]
  7. FLUOXETINE [Concomitant]
  8. LOPERAMIDE [Concomitant]

REACTIONS (4)
  - DRUG INEFFECTIVE [None]
  - FLUSHING [None]
  - HYPERHIDROSIS [None]
  - SECONDARY HYPOGONADISM [None]
